FAERS Safety Report 9263342 (Version 1)
Quarter: 2013Q2

REPORT INFORMATION
  Report Type: Spontaneous
  Country: US (occurrence: US)
  Receive Date: 20130430
  Receipt Date: 20130430
  Transmission Date: 20140414
  Serious: No
  Sender: FDA-Public Use
  Company Number: US-ABBOTT-12P-163-1008021-00

PATIENT
  Age: 72 Year
  Sex: Male
  Weight: 62 kg

DRUGS (3)
  1. CREON [Suspect]
     Indication: PANCREATIC INSUFFICIENCY
     Dosage: TOOK TWICE A DAY WITH MAIN MEALS
     Dates: start: 201104
  2. CREON [Suspect]
     Indication: GASTRECTOMY
     Dosage: TOOK WITH SMALL MEALS OR SNACK.
     Dates: start: 201104, end: 2012
  3. INSULIN [Concomitant]
     Indication: DIABETES MELLITUS

REACTIONS (5)
  - Breath odour [Recovered/Resolved]
  - Drug effect decreased [Recovered/Resolved]
  - Flatulence [Recovered/Resolved]
  - Frequent bowel movements [Recovered/Resolved]
  - Bowel movement irregularity [Recovered/Resolved]
